FAERS Safety Report 5175394-2 (Version None)
Quarter: 2006Q4

REPORT INFORMATION
  Report Type: 
  Country: None (occurrence: None)
  Receive Date: 20061212
  Receipt Date: 20061212
  Transmission Date: 20070319
  Serious: Yes (Hospitalization)
  Sender: FDA-Public Use
  Company Number: None

PATIENT
  Sex: Female
  Weight: 77.09 kg

DRUGS (2)
  1. CISPLATIN [Suspect]
     Dosage: 97 MG
  2. NAVELBINE [Suspect]
     Dosage: 114 MG

REACTIONS (3)
  - ANAEMIA [None]
  - NEUTROPENIA [None]
  - RENAL FAILURE [None]
